FAERS Safety Report 18716767 (Version 1)
Quarter: 2021Q1

REPORT INFORMATION
  Report Type: Spontaneous
  Country: FR (occurrence: FR)
  Receive Date: 20210108
  Receipt Date: 20210108
  Transmission Date: 20210419
  Serious: Yes (Other)
  Sender: FDA-Public Use
  Company Number: FR-MYLANLABS-2021M1000144

PATIENT
  Age: 6 Decade
  Sex: Female

DRUGS (3)
  1. TEMOZOLOMIDE. [Suspect]
     Active Substance: TEMOZOLOMIDE
     Indication: PITUITARY CANCER METASTATIC
     Dosage: 250?270 MG/DAY FOR 5 DAYS...
     Route: 065
     Dates: start: 2009, end: 2010
  2. TEMOZOLOMIDE. [Suspect]
     Active Substance: TEMOZOLOMIDE
     Dosage: 250 MILLIGRAM, CYCLE...
     Route: 065
     Dates: start: 2013, end: 2013
  3. KETOCONAZOLE. [Concomitant]
     Active Substance: KETOCONAZOLE
     Indication: HYPERADRENOCORTICISM
     Dosage: STARTED PRIOR TO BIOCHEMICAL....
     Route: 065

REACTIONS (2)
  - Off label use [Unknown]
  - Thrombocytopenia [Unknown]
